FAERS Safety Report 20908332 (Version 1)
Quarter: 2022Q2

REPORT INFORMATION
  Report Type: Spontaneous
  Country: CN (occurrence: CN)
  Receive Date: 20220603
  Receipt Date: 20220603
  Transmission Date: 20220721
  Serious: Yes (Other)
  Sender: FDA-Public Use
  Company Number: CN-SUN PHARMACEUTICAL INDUSTRIES LTD-2022R1-339003

PATIENT
  Age: 59 Year
  Sex: Male

DRUGS (5)
  1. DEXAMETHASONE [Suspect]
     Active Substance: DEXAMETHASONE
     Indication: Blastic plasmacytoid dendritic cell neoplasia
     Dosage: 1 MILLIGRAM/KILOGRAM, DAILY, FOR 14 CONSECUTIVE DAYS
     Route: 048
  2. DEXAMETHASONE [Suspect]
     Active Substance: DEXAMETHASONE
     Dosage: 1/3 ON DAYS 15-28)
     Route: 048
  3. ASPARAGINASE [Suspect]
     Active Substance: ASPARAGINASE
     Indication: Blastic plasmacytoid dendritic cell neoplasia
     Dosage: 6000 IU/M2, DAYS 11, 14, 17, 20, 23, AND 26
     Route: 042
  4. VINCRISTINE [Suspect]
     Active Substance: VINCRISTINE
     Indication: Blastic plasmacytoid dendritic cell neoplasia
     Dosage: 2 MILLIGRAM, DAYS 1, 8, 15, AND 22
     Route: 042
  5. DAUNORUBICIN [Suspect]
     Active Substance: DAUNORUBICIN
     Indication: Blastic plasmacytoid dendritic cell neoplasia
     Dosage: 40 MILLIGRAM/SQ. METER, DAYS 1-3 AND 15-16
     Route: 042

REACTIONS (1)
  - Myelosuppression [Unknown]
